FAERS Safety Report 5277434-9 (Version None)
Quarter: 2007Q1

REPORT INFORMATION
  Report Type: 
  Country: None (occurrence: None)
  Receive Date: 20061213
  Receipt Date: 20060613
  Transmission Date: 20070707
  Serious: Yes (Hospitalization)
  Sender: FDA-Public Use
  Company Number: 2006UW05682

PATIENT
  Age: 53 Year
  Sex: Female
  Weight: 107.9561 kg

DRUGS (2)
  1. SEROQUEL [Suspect]
     Indication: BIPOLAR DISORDER
     Dosage: 500 MG HS PO
     Route: 048
  2. COGENTIN [Concomitant]

REACTIONS (7)
  - BLOOD SODIUM DECREASED [None]
  - CONVULSION [None]
  - HYPERTENSION [None]
  - LETHARGY [None]
  - NEUROLEPTIC MALIGNANT SYNDROME [None]
  - PYREXIA [None]
  - WHITE BLOOD CELL COUNT INCREASED [None]
